FAERS Safety Report 4847599-9 (Version None)
Quarter: 2005Q4

REPORT INFORMATION
  Report Type: 
  Country: None (occurrence: None)
  Receive Date: 20051205
  Receipt Date: 20051124
  Transmission Date: 20060501
  Serious: Yes (Death, Life-Threatening)
  Sender: FDA-Public Use
  Company Number: 2005160504

PATIENT
  Age: 30 Year
  Sex: Female
  Weight: 80 kg

DRUGS (6)
  1. XANAX [Suspect]
     Indication: ILL-DEFINED DISORDER
     Dosage: (0.25 MG), ORAL
     Route: 048
     Dates: start: 20050124, end: 20051002
  2. AUGMENTIN '125' [Suspect]
     Indication: ILL-DEFINED DISORDER
     Dosage: 3 GRAM (1 GRAM, 3 IN 1 D), ORAL
     Route: 048
     Dates: start: 20050124, end: 20050207
  3. TRABECTEDIN (TRABECTEDIN) [Suspect]
     Indication: NEOPLASM MALIGNANT
     Dosage: 2.5 MG (1 IN 1 D), INTRAVENOUS
     Route: 042
     Dates: start: 20050125, end: 20050125
  4. EXOMUC (ACETYLCYSTEINE) [Suspect]
     Indication: ILL-DEFINED DISORDER
     Dosage: 3DF (1 IN 1 D), ORAL
     Route: 048
     Dates: start: 20050124, end: 20050207
  5. NEUPOGEN [Concomitant]
  6. ALL OTHER THERAPEUTIC PRODUCTS (ALL OTHER THERAPEUTIC PRODUCTS) [Concomitant]

REACTIONS (9)
  - ALANINE AMINOTRANSFERASE INCREASED [None]
  - ANAEMIA [None]
  - ASPARTATE AMINOTRANSFERASE INCREASED [None]
  - BLOOD ALKALINE PHOSPHATASE INCREASED [None]
  - BONE NEOPLASM MALIGNANT [None]
  - CARTILAGE NEOPLASM [None]
  - FEBRILE NEUTROPENIA [None]
  - NEPHROPATHY TOXIC [None]
  - THROMBOCYTOPENIA [None]
